FAERS Safety Report 8880394 (Version 1)
Quarter: 2012Q4

REPORT INFORMATION
  Report Type: 
  Country: PL (occurrence: PL)
  Receive Date: 20121031
  Receipt Date: 20121031
  Transmission Date: 20130627
  Serious: Yes (Other)
  Sender: FDA-Public Use
  Company Number: PHHY2012PL098317

PATIENT

DRUGS (1)
  1. ATORVASTATIN CALCIUM [Suspect]
     Dosage: 1 DF, UNK
     Route: 048
     Dates: start: 201204, end: 201210

REACTIONS (5)
  - Angina pectoris [Unknown]
  - Palpitations [Unknown]
  - Blood pressure fluctuation [Unknown]
  - Asthenia [Unknown]
  - Malaise [Unknown]
